FAERS Safety Report 7759844-0 (Version None)
Quarter: 2011Q3

REPORT INFORMATION
  Report Type: 
  Country: None (occurrence: None)
  Receive Date: 20110919
  Receipt Date: 20110908
  Transmission Date: 20111222
  Serious: Yes (Hospitalization)
  Sender: FDA-Public Use
  Company Number: CA-JNJFOC-20110904606

PATIENT
  Sex: Male
  Weight: 95 kg

DRUGS (6)
  1. ALL OTHER THERAPEUTIC PRODUCTS [Concomitant]
  2. METHOTREXATE [Concomitant]
  3. ASPIRIN [Concomitant]
  4. FOLIC ACID [Concomitant]
  5. REMICADE [Suspect]
     Indication: RHEUMATOID ARTHRITIS
     Route: 042
     Dates: start: 20090511
  6. PRILOSEC [Concomitant]

REACTIONS (1)
  - SKIN MASS [None]
